FAERS Safety Report 6875455-3 (Version None)
Quarter: 2010Q3

REPORT INFORMATION
  Report Type: 
  Country: None (occurrence: None)
  Receive Date: 20100727
  Receipt Date: 20100715
  Transmission Date: 20110219
  Serious: Yes (Hospitalization)
  Sender: FDA-Public Use
  Company Number: PL-JNJFOC-20100405122

PATIENT
  Sex: Male
  Weight: 71 kg

DRUGS (8)
  1. BLINDED; GOLIMUMA [Suspect]
     Indication: COLITIS ULCERATIVE
     Route: 058
  2. BLINDED; GOLIMUMA [Suspect]
     Route: 058
  3. PLACEBO [Suspect]
     Indication: COLITIS ULCERATIVE
     Route: 058
  4. PLACEBO [Suspect]
     Route: 058
  5. ENCORTON [Concomitant]
     Indication: COLITIS ULCERATIVE
     Route: 048
  6. ASAMAX [Concomitant]
     Indication: COLITIS ULCERATIVE
     Route: 048
  7. AZATHIOPRINE [Concomitant]
     Indication: COLITIS ULCERATIVE
     Route: 048
  8. ALL OTHER THERAPEUTIC PRODUCTS [Concomitant]
     Route: 048

REACTIONS (1)
  - LATENT TUBERCULOSIS [None]
